FAERS Safety Report 9632327 (Version 1)
Quarter: 2013Q4

REPORT INFORMATION
  Report Type: Spontaneous
  Country: US (occurrence: US)
  Receive Date: 20131018
  Receipt Date: 20131018
  Transmission Date: 20140711
  Serious: Yes (Hospitalization, Other)
  Sender: FDA-Public Use
  Company Number: US-ACTELION-A-US2013-89656

PATIENT
  Age: 2 Month
  Sex: Male

DRUGS (8)
  1. TRACLEER [Suspect]
     Indication: PULMONARY ARTERIAL HYPERTENSION
     Dosage: 2 MG/KG, BID
     Route: 048
     Dates: start: 20130923, end: 20130926
  2. TRACLEER [Suspect]
     Dosage: 2 MG/KG, QD
     Route: 048
     Dates: start: 20130912, end: 20130922
  3. VITAMIN D [Concomitant]
  4. IRON [Concomitant]
  5. LASIX [Concomitant]
  6. METHADONE [Concomitant]
  7. REGLAN [Concomitant]
  8. ZANTAC [Concomitant]

REACTIONS (5)
  - Adhesion [Recovering/Resolving]
  - Adhesiolysis [Recovering/Resolving]
  - Intestinal obstruction [Recovering/Resolving]
  - Vomiting [Recovering/Resolving]
  - Liver function test abnormal [Recovering/Resolving]
